FAERS Safety Report 5947143-9 (Version None)
Quarter: 2008Q4

REPORT INFORMATION
  Report Type: 
  Country: None (occurrence: None)
  Receive Date: 20081106
  Receipt Date: 20081029
  Transmission Date: 20090506
  Serious: Yes (Other)
  Sender: FDA-Public Use
  Company Number: 2008AP000058

PATIENT
  Sex: Male

DRUGS (6)
  1. QUINAPRIL [Suspect]
     Indication: HYPERTENSION
     Dosage: 40 MG; QD; PO
     Route: 048
  2. LANSOPRAZOLE [Concomitant]
  3. DESLORATADINE [Concomitant]
  4. SIMVASTATIN [Concomitant]
  5. AMLODIPINE [Concomitant]
  6. ATORVASTATIN CALCIUM [Concomitant]

REACTIONS (2)
  - INFECTION [None]
  - PROSTATIC SPECIFIC ANTIGEN INCREASED [None]
